FAERS Safety Report 6274337-8 (Version None)
Quarter: 2009Q3

REPORT INFORMATION
  Report Type: 
  Country: None (occurrence: None)
  Receive Date: 20090716
  Receipt Date: 20090709
  Transmission Date: 20100115
  Serious: Yes (Death)
  Sender: FDA-Public Use
  Company Number: ADR6552009(ARROW LOG NO. 2009AG0674)

PATIENT
  Age: 25 Year
  Sex: Female

DRUGS (1)
  1. LAMOTRIGINE [Suspect]
     Indication: EPILEPSY
     Dosage: 100 MG, ORAL
     Route: 048

REACTIONS (5)
  - ARRHYTHMIA [None]
  - EPILEPSY [None]
  - FATIGUE [None]
  - SUDDEN DEATH [None]
  - TREMOR [None]
